FAERS Safety Report 8895259 (Version 1)
Quarter: 2012Q4

REPORT INFORMATION
  Report Type: 
  Country: JP (occurrence: JP)
  Receive Date: 20121107
  Receipt Date: 20121107
  Transmission Date: 20130627
  Serious: Yes (Other)
  Sender: FDA-Public Use
  Company Number: JP-PFIZER INC-2012276268

PATIENT
  Age: 66 Year
  Sex: Female

DRUGS (1)
  1. MIGLITOL [Suspect]
     Dosage: 150 mg, UNK
     Route: 048
     Dates: start: 20120409

REACTIONS (1)
  - Hypoglycaemia [Unknown]
